FAERS Safety Report 17839009 (Version 3)
Quarter: 2020Q2

REPORT INFORMATION
  Report Type: Spontaneous
  Country: US (occurrence: US)
  Receive Date: 20200529
  Receipt Date: 20200612
  Transmission Date: 20200714
  Serious: Yes (Death, Life-Threatening, Hospitalization, Other)
  Sender: FDA-Public Use
  Company Number: US-UNITED THERAPEUTICS-UNT-2020-007665

PATIENT
  Sex: Female

DRUGS (4)
  1. LEVOPHED [Concomitant]
     Active Substance: NOREPINEPHRINE BITARTRATE
     Indication: PRODUCT USED FOR UNKNOWN INDICATION
     Dosage: UNK
     Route: 065
  2. REMODULIN [Suspect]
     Active Substance: TREPROSTINIL
     Indication: PULMONARY ARTERIAL HYPERTENSION
     Dosage: UNK, CONTINUING
     Route: 041
     Dates: start: 20181206
  3. VASOPRESSIN. [Concomitant]
     Active Substance: VASOPRESSIN
     Indication: PRODUCT USED FOR UNKNOWN INDICATION
     Route: 065
  4. REMODULIN [Suspect]
     Active Substance: TREPROSTINIL
     Dosage: 0.057 ?G/KG, CONTINUING
     Route: 041

REACTIONS (9)
  - Acute kidney injury [Unknown]
  - Toxic encephalopathy [Unknown]
  - Shock [Fatal]
  - Pulmonary arterial hypertension [Fatal]
  - Hepatic failure [Unknown]
  - Urosepsis [Unknown]
  - Autoimmune hepatitis [Fatal]
  - Primary biliary cholangitis [Fatal]
  - Hepatic encephalopathy [Fatal]
